FAERS Safety Report 22910000 (Version 2)
Quarter: 2025Q1

REPORT INFORMATION
  Report Type: Spontaneous
  Country: US (occurrence: US)
  Receive Date: 20230906
  Receipt Date: 20250227
  Transmission Date: 20250409
  Serious: No
  Sender: PADAGIS
  Company Number: US-PADAGIS-2023PAD01242

PATIENT

DRUGS (1)
  1. TESTOSTERONE CYPIONATE [Suspect]
     Active Substance: TESTOSTERONE CYPIONATE
     Indication: Blood testosterone decreased
     Dosage: 0.75 ML, WEEKLY (18G TO DRAW AND A 22G TO INJECT)
     Route: 065
     Dates: start: 202308

REACTIONS (3)
  - Injection site swelling [Recovered/Resolved]
  - Product storage error [Unknown]
  - Product deposit [Unknown]

NARRATIVE: CASE EVENT DATE: 20230801
